FAERS Safety Report 7654356-7 (Version None)
Quarter: 2011Q3

REPORT INFORMATION
  Report Type: 
  Country: None (occurrence: None)
  Receive Date: 20110803
  Receipt Date: 20110801
  Transmission Date: 20111222
  Serious: Yes (Other)
  Sender: FDA-Public Use
  Company Number: US-PFIZER INC-2011175240

PATIENT
  Sex: Female

DRUGS (7)
  1. LEVOTHYROXINE [Concomitant]
     Indication: HYPOTHYROIDISM
     Dosage: UNK
  2. ZOLOFT [Concomitant]
     Dosage: 100 MG, 2X/DAY
  3. VITAMINS NOS [Concomitant]
     Dosage: UNK
  4. LYRICA [Suspect]
     Indication: HEADACHE
  5. LYRICA [Suspect]
     Indication: MIGRAINE
     Dosage: 25 MG, 4X/DAY
     Route: 048
     Dates: start: 20110601, end: 20110701
  6. PREMARIN [Concomitant]
     Dosage: 1.25 MG, 1X/DAY
  7. TOPAMAX [Concomitant]
     Dosage: 25 MG, 3X/DAY

REACTIONS (2)
  - HEPATIC ENZYME INCREASED [None]
  - MIGRAINE [None]
